FAERS Safety Report 5691447-4 (Version None)
Quarter: 2008Q2

REPORT INFORMATION
  Report Type: 
  Country: None (occurrence: None)
  Receive Date: 20080401
  Receipt Date: 20080401
  Transmission Date: 20081010
  Serious: Yes (Other)
  Sender: FDA-Public Use
  Company Number: None

PATIENT
  Age: 7 Year
  Sex: Female
  Weight: 19.0511 kg

DRUGS (1)
  1. SINGULAIR [Suspect]
     Indication: ASTHMA
     Dosage: 5 MG PM DAILY PO
     Route: 048
     Dates: start: 20031030, end: 20080331

REACTIONS (8)
  - CONVULSION [None]
  - DISTURBANCE IN ATTENTION [None]
  - EDUCATIONAL PROBLEM [None]
  - EYE MOVEMENT DISORDER [None]
  - INTENTIONAL SELF-INJURY [None]
  - MEMORY IMPAIRMENT [None]
  - SOCIAL AVOIDANT BEHAVIOUR [None]
  - STARING [None]
